FAERS Safety Report 9742139 (Version 2)
Quarter: 2013Q4

REPORT INFORMATION
  Report Type: Spontaneous
  Country: CN (occurrence: CN)
  Receive Date: 20131210
  Receipt Date: 20131212
  Transmission Date: 20140711
  Serious: Yes (Hospitalization)
  Sender: FDA-Public Use
  Company Number: CN-SA-2013SA125121

PATIENT
  Age: 28 Year
  Sex: Female
  Weight: 37 kg

DRUGS (8)
  1. TAXOTERE [Suspect]
     Indication: BREAST CANCER
     Dosage: ROUTE IVGTT
     Dates: start: 20130614
  2. TAXOTERE [Suspect]
     Indication: BREAST CANCER
     Dosage: ROUTE: IV GTT
     Dates: start: 20130705
  3. TAXOTERE [Suspect]
     Indication: BREAST CANCER
     Dosage: ROUTE: IV GTT
     Dates: start: 20130728, end: 20130728
  4. CYCLOPHOSPHAMIDE [Suspect]
     Indication: BREAST CANCER
     Dosage: ROUTE IVGTT
     Dates: start: 20130614, end: 20130728
  5. EPIRUBICIN HYDROCHLORIDE [Suspect]
     Indication: BREAST CANCER
     Dosage: ROUTE IVGTT
     Dates: start: 20130614
  6. EPIRUBICIN HYDROCHLORIDE [Suspect]
     Indication: BREAST CANCER
     Dosage: ROUTE: IV GTT
     Dates: start: 20130705
  7. EPIRUBICIN HYDROCHLORIDE [Suspect]
     Indication: BREAST CANCER
     Dosage: ROUTE: IV GTT
     Dates: start: 20130728, end: 20130728
  8. ESSENTIALE FORTE N [Concomitant]
     Route: 048
     Dates: start: 20130614, end: 20130728

REACTIONS (1)
  - Bone marrow failure [Recovering/Resolving]
